FAERS Safety Report 12788845 (Version 1)
Quarter: 2016Q3

REPORT INFORMATION
  Report Type: Spontaneous
  Country: US (occurrence: US)
  Receive Date: 20160928
  Receipt Date: 20160928
  Transmission Date: 20161109
  Serious: Yes (Other)
  Sender: FDA-Public Use
  Company Number: None

PATIENT
  Age: 60 Year
  Sex: Female
  Weight: 71.1 kg

DRUGS (3)
  1. METRONIDIZOLE 500 MG [Suspect]
     Active Substance: METRONIDAZOLE\METRONIDAZOLE HYDROCHLORIDE
     Indication: VAGINITIS BACTERIAL
     Dosage: OTHER EVERY 12 HOURS ORAL
     Route: 048
     Dates: start: 20160924, end: 20160926
  2. VITAMINS [Concomitant]
     Active Substance: VITAMINS
  3. SUPPLEMENTS [Concomitant]
     Active Substance: UNSPECIFIED INGREDIENT

REACTIONS (4)
  - Burning sensation [None]
  - Ear swelling [None]
  - Erythema [None]
  - Pruritus [None]

NARRATIVE: CASE EVENT DATE: 20160926
